FAERS Safety Report 4761507-0 (Version None)
Quarter: 2005Q3

REPORT INFORMATION
  Report Type: 
  Country: None (occurrence: None)
  Receive Date: 20050906
  Receipt Date: 20050825
  Transmission Date: 20060218
  Serious: Yes (Death)
  Sender: FDA-Public Use
  Company Number: GB-GLAXOSMITHKLINE-B0391995A

PATIENT
  Age: 29 Year
  Sex: Male

DRUGS (3)
  1. ZYBAN [Suspect]
     Dosage: 150MG PER DAY
     Route: 048
     Dates: start: 20050401
  2. CITALOPRAM [Concomitant]
  3. CHLORPHENIRAMINE MALEATE [Concomitant]

REACTIONS (8)
  - ACUTE PULMONARY OEDEMA [None]
  - DERMATITIS ALLERGIC [None]
  - HYPERSENSITIVITY [None]
  - LOCAL SWELLING [None]
  - MALAISE [None]
  - PAIN [None]
  - PYREXIA [None]
  - RASH [None]
